FAERS Safety Report 9968379 (Version 2)
Quarter: 2015Q1

REPORT INFORMATION
  Report Type: Report from Study
  Country: US (occurrence: US)
  Receive Date: 20140306
  Receipt Date: 20150216
  Transmission Date: 20150721
  Serious: Yes (Hospitalization)
  Sender: FDA-Public Use
  Company Number: US-ABBVIE-13P-163-1143053-00

PATIENT
  Age: 55 Year
  Sex: Male
  Weight: 79.45 kg

DRUGS (13)
  1. WARFARIN [Concomitant]
     Active Substance: WARFARIN
     Indication: ANTICOAGULANT THERAPY
  2. HYDROCHLOROTH [Concomitant]
     Active Substance: HYDROCHLOROTHIAZIDE
     Indication: HYPERTENSION
  3. PENTASA [Concomitant]
     Active Substance: MESALAMINE
     Indication: PRODUCT USED FOR UNKNOWN INDICATION
     Route: 048
  4. PENTASA [Concomitant]
     Active Substance: MESALAMINE
     Indication: CROHN^S DISEASE
  5. KLOR-CON [Concomitant]
     Active Substance: POTASSIUM CHLORIDE
     Indication: VITAMIN SUPPLEMENTATION
  6. SYMAX [Concomitant]
     Active Substance: HYOSCYAMINE SULFATE
     Indication: PAIN
  7. QUESTRON [Concomitant]
     Indication: DIARRHOEA
  8. HUMIRA [Suspect]
     Active Substance: ADALIMUMAB
     Indication: CROHN^S DISEASE
     Route: 058
     Dates: start: 201303
  9. LOMOTIL [Concomitant]
     Active Substance: ATROPINE SULFATE\DIPHENOXYLATE HYDROCHLORIDE
     Indication: CROHN^S DISEASE
  10. PROTONIX [Concomitant]
     Active Substance: PANTOPRAZOLE SODIUM
     Indication: GASTROOESOPHAGEAL REFLUX DISEASE
  11. SYMAX [Concomitant]
     Active Substance: HYOSCYAMINE SULFATE
     Indication: CROHN^S DISEASE
  12. TAZITA [Concomitant]
     Indication: HYPERTENSION
  13. ENTOCORT [Concomitant]
     Active Substance: BUDESONIDE
     Indication: INFLAMMATORY BOWEL DISEASE
     Route: 048

REACTIONS (6)
  - Clostridium difficile infection [Recovered/Resolved]
  - Chest pain [Recovered/Resolved]
  - Clostridium difficile infection [Recovered/Resolved]
  - Flatulence [Recovered/Resolved]
  - Diarrhoea [Recovered/Resolved]
  - Cholelithiasis [Recovered/Resolved]

NARRATIVE: CASE EVENT DATE: 201305
